FAERS Safety Report 18505737 (Version 2)
Quarter: 2021Q1

REPORT INFORMATION
  Report Type: Spontaneous
  Country: US (occurrence: US)
  Receive Date: 20201116
  Receipt Date: 20210111
  Transmission Date: 20210419
  Serious: Yes (Hospitalization)
  Sender: FDA-Public Use
  Company Number: US-KARYOPHARM-2020KPT001300

PATIENT

DRUGS (1)
  1. XPOVIO [Suspect]
     Active Substance: SELINEXOR
     Indication: PLASMA CELL MYELOMA
     Dosage: 80 MG, WEEKLY
     Route: 048
     Dates: start: 20200924

REACTIONS (4)
  - Asthenia [Unknown]
  - Gait disturbance [Unknown]
  - Dehydration [Unknown]
  - Brain neoplasm [Unknown]

NARRATIVE: CASE EVENT DATE: 202010
